FAERS Safety Report 8123819-2 (Version None)
Quarter: 2012Q1

REPORT INFORMATION
  Report Type: 
  Country: None (occurrence: None)
  Receive Date: 20120208
  Receipt Date: 20120126
  Transmission Date: 20120608
  Serious: Yes (Other)
  Sender: FDA-Public Use
  Company Number: BR-AMGEN-BRASP2012007349

PATIENT
  Age: 24 Year
  Sex: Male
  Weight: 91 kg

DRUGS (3)
  1. AMITRIPTYLINE HCL [Concomitant]
     Indication: ANKYLOSING SPONDYLITIS
     Dosage: UNK
  2. DIPIRONE [Concomitant]
     Indication: MIGRAINE
     Dosage: UNK
  3. ENBREL [Suspect]
     Indication: ANKYLOSING SPONDYLITIS
     Dosage: 50 MG, WEEKLY
     Route: 058
     Dates: start: 20110720, end: 20111126

REACTIONS (5)
  - BLOOD CHOLESTEROL INCREASED [None]
  - MUSCLE RIGIDITY [None]
  - LIVER DISORDER [None]
  - ASTHENIA [None]
  - PYREXIA [None]
